FAERS Safety Report 11046738 (Version 3)
Quarter: 2015Q4

REPORT INFORMATION
  Report Type: Spontaneous
  Country: JP (occurrence: JP)
  Receive Date: 20150420
  Receipt Date: 20151019
  Transmission Date: 20160304
  Serious: Yes (Hospitalization, Other)
  Sender: FDA-Public Use
  Company Number: JP-ROCHE-1565400

PATIENT
  Age: 79 Year
  Sex: Female

DRUGS (3)
  1. BONVIVA [Suspect]
     Active Substance: IBANDRONATE SODIUM
     Indication: OSTEOPOROSIS
     Dosage: MOST RECENT DSOE: 16/MAR/2015.
     Route: 042
     Dates: start: 20150116, end: 20150316
  2. BONVIVA [Suspect]
     Active Substance: IBANDRONATE SODIUM
     Indication: OSTEOPOROSIS
     Route: 042
     Dates: start: 2015
  3. EDIROL [Concomitant]
     Active Substance: ELDECALCITOL

REACTIONS (2)
  - Femoral neck fracture [Unknown]
  - Fall [Unknown]

NARRATIVE: CASE EVENT DATE: 20150317
